FAERS Safety Report 17604679 (Version 3)
Quarter: 2020Q2

REPORT INFORMATION
  Report Type: Spontaneous
  Country: US (occurrence: US)
  Receive Date: 20200331
  Receipt Date: 20200512
  Transmission Date: 20200713
  Serious: No
  Sender: FDA-Public Use
  Company Number: US-PFIZER INC-2020134165

PATIENT
  Age: 77 Year
  Sex: Female

DRUGS (2)
  1. LYRICA [Suspect]
     Active Substance: PREGABALIN
     Indication: DIABETIC NEUROPATHY
     Dosage: 50 MG, DAILY (EVERY DAY/AT BEDTIME)
     Route: 048
  2. LYRICA [Suspect]
     Active Substance: PREGABALIN
     Indication: SEBORRHOEIC DERMATITIS

REACTIONS (3)
  - Drug hypersensitivity [Unknown]
  - Throat irritation [Unknown]
  - Amnesia [Unknown]
